FAERS Safety Report 5588824-9 (Version None)
Quarter: 2008Q1

REPORT INFORMATION
  Report Type: 
  Country: None (occurrence: None)
  Receive Date: 20080111
  Receipt Date: 20071231
  Transmission Date: 20080703
  Serious: Yes (Other)
  Sender: FDA-Public Use
  Company Number: US-PFIZER INC-2008000762

PATIENT
  Sex: Female

DRUGS (1)
  1. LYRICA [Suspect]

REACTIONS (7)
  - ALTERED VISUAL DEPTH PERCEPTION [None]
  - BALANCE DISORDER [None]
  - CARDIAC FLUTTER [None]
  - CLUMSINESS [None]
  - DRUG INEFFECTIVE [None]
  - MEMORY IMPAIRMENT [None]
  - MIDDLE INSOMNIA [None]
